FAERS Safety Report 5118502-1 (Version None)
Quarter: 2006Q3

REPORT INFORMATION
  Report Type: 
  Country: None (occurrence: None)
  Receive Date: 20060927
  Receipt Date: 20060919
  Transmission Date: 20061208
  Serious: Yes (Hospitalization)
  Sender: FDA-Public Use
  Company Number: TPA2006A01595

PATIENT
  Age: 48 Year
  Sex: Male
  Weight: 146.9654 kg

DRUGS (6)
  1. ACTOS [Suspect]
     Indication: DIABETES MELLITUS
     Dosage: 45 MG, 1 IN 1 D, PER ORAL
     Route: 048
     Dates: start: 20030101
  2. BENICAR [Concomitant]
  3. TRIAMTERENE (TRIAMTERENE) [Concomitant]
  4. GARLIC PILL (ALLIUM SATIVUM) [Concomitant]
  5. ST. JOHN'S WORT (HYPERICUM PERFORATUM) [Concomitant]
  6. . [Concomitant]

REACTIONS (3)
  - IMPAIRED HEALING [None]
  - THROAT CANCER [None]
  - THYROID CANCER [None]
